FAERS Safety Report 13082476 (Version 3)
Quarter: 2017Q1

REPORT INFORMATION
  Report Type: Spontaneous
  Country: US (occurrence: US)
  Receive Date: 20170103
  Receipt Date: 20170213
  Transmission Date: 20170428
  Serious: Yes (Other)
  Sender: FDA-Public Use
  Company Number: US-AKORN PHARMACEUTICALS-2016AKN00954

PATIENT
  Sex: Female

DRUGS (5)
  1. IUD NOS [Concomitant]
     Active Substance: COPPER OR LEVONORGESTREL
  2. MYORISAN [Suspect]
     Active Substance: ISOTRETINOIN
     Indication: ACNE
     Dosage: 1 TABLETS, 1X/DAY
     Route: 048
     Dates: start: 20161017, end: 20161219
  3. CLINDAMYCIN. [Concomitant]
     Active Substance: CLINDAMYCIN
     Route: 061
  4. ADAPALENE. [Concomitant]
     Active Substance: ADAPALENE
     Route: 061
  5. BENZOYL PEROXIDE. [Concomitant]
     Active Substance: BENZOYL PEROXIDE
     Route: 061

REACTIONS (4)
  - Panic attack [Unknown]
  - Depression [Unknown]
  - Anxiety [Unknown]
  - Mood altered [Unknown]

NARRATIVE: CASE EVENT DATE: 2016
